APPROVED DRUG PRODUCT: METOPIRONE
Active Ingredient: METYRAPONE
Strength: 250MG
Dosage Form/Route: TABLET;ORAL
Application: N012911 | Product #001
Applicant: ESTEVE PHARMACEUTICALS SA
Approved: Approved Prior to Jan 1, 1982 | RLD: No | RS: No | Type: DISCN